FAERS Safety Report 23186675 (Version 2)
Quarter: 2023Q4

REPORT INFORMATION
  Report Type: Spontaneous
  Country: US (occurrence: US)
  Receive Date: 20231115
  Receipt Date: 20231213
  Transmission Date: 20240110
  Serious: No
  Sender: FDA-Public Use
  Company Number: US-SA-SAC20231109001302

PATIENT
  Age: 41 Year
  Sex: Male

DRUGS (12)
  1. ELOCTATE [Suspect]
     Active Substance: EFMOROCTOCOG ALFA
     Indication: Factor VIII deficiency
     Dosage: 6900 U (6210-7590); EVERY 24 HOURS AS NEEDED (PRN) FOR BLEEDS
     Route: 042
     Dates: start: 201303
  2. ELOCTATE [Suspect]
     Active Substance: EFMOROCTOCOG ALFA
     Indication: Factor VIII deficiency
     Dosage: 6900 U (6210-7590); EVERY 24 HOURS AS NEEDED (PRN) FOR BLEEDS
     Route: 042
     Dates: start: 201303
  3. ELOCTATE [Suspect]
     Active Substance: EFMOROCTOCOG ALFA
     Dosage: 6900  U (6210-7590); Q4D FOR BLEEDS
     Route: 042
     Dates: start: 201303
  4. ELOCTATE [Suspect]
     Active Substance: EFMOROCTOCOG ALFA
     Dosage: 6900  U (6210-7590); Q4D FOR BLEEDS
     Route: 042
     Dates: start: 201303
  5. ELOCTATE [Suspect]
     Active Substance: EFMOROCTOCOG ALFA
     Dosage: 1500 U
     Route: 042
     Dates: start: 202305
  6. ELOCTATE [Suspect]
     Active Substance: EFMOROCTOCOG ALFA
     Dosage: 1500 U
     Route: 042
     Dates: start: 202305
  7. ELOCTATE [Suspect]
     Active Substance: EFMOROCTOCOG ALFA
     Dosage: 4000  U
     Route: 042
     Dates: start: 202305
  8. ELOCTATE [Suspect]
     Active Substance: EFMOROCTOCOG ALFA
     Dosage: 4000  U
     Route: 042
     Dates: start: 202305
  9. ELOCTATE [Suspect]
     Active Substance: EFMOROCTOCOG ALFA
     Dosage: 6900  U (6210-7590); Q4D FOR BLEEDS
     Route: 042
     Dates: start: 202305
  10. ELOCTATE [Suspect]
     Active Substance: EFMOROCTOCOG ALFA
     Dosage: 6900  U (6210-7590); Q4D FOR BLEEDS
     Route: 042
     Dates: start: 202305
  11. ELOCTATE [Suspect]
     Active Substance: EFMOROCTOCOG ALFA
     Dosage: 6900 U (6210-7590); EVERY 24 HOURS AS NEEDED (PRN) FOR BLEEDS
     Route: 042
     Dates: start: 202305
  12. ELOCTATE [Suspect]
     Active Substance: EFMOROCTOCOG ALFA
     Dosage: 6900 U (6210-7590); EVERY 24 HOURS AS NEEDED (PRN) FOR BLEEDS
     Route: 042
     Dates: start: 202305

REACTIONS (2)
  - Haemorrhage [Not Recovered/Not Resolved]
  - Spontaneous haemorrhage [Not Recovered/Not Resolved]

NARRATIVE: CASE EVENT DATE: 20230101
